FAERS Safety Report 7081182-2 (Version None)
Quarter: 2010Q4

REPORT INFORMATION
  Report Type: 
  Country: None (occurrence: None)
  Receive Date: 20101103
  Receipt Date: 20101027
  Transmission Date: 20110411
  Serious: Yes (Other)
  Sender: FDA-Public Use
  Company Number: TW-ROCHE-737991

PATIENT
  Age: 60 Year
  Sex: Male

DRUGS (2)
  1. PEGASYS [Suspect]
     Indication: HEPATITIS C
     Route: 058
     Dates: start: 20100301, end: 20100901
  2. ROBATROL [Concomitant]
     Indication: HEPATITIS C
     Route: 048
     Dates: start: 20100301, end: 20100901

REACTIONS (1)
  - HEPATIC NEOPLASM MALIGNANT [None]
